FAERS Safety Report 20554829 (Version 1)
Quarter: 2022Q1

REPORT INFORMATION
  Report Type: Report from Study
  Country: US (occurrence: US)
  Receive Date: 20220304
  Receipt Date: 20220304
  Transmission Date: 20220423
  Serious: Yes (Hospitalization)
  Sender: FDA-Public Use
  Company Number: US-JAZZ-2022-US-005470

PATIENT
  Sex: Female

DRUGS (9)
  1. XYREM [Suspect]
     Active Substance: SODIUM OXYBATE
     Indication: Insomnia
     Dosage: UNKNOWN DOSE,FREQUENCY
     Route: 048
  2. MIRTAZAPINE [Concomitant]
     Active Substance: MIRTAZAPINE
     Dosage: 0000
     Dates: start: 20130101
  3. CLONIDINE HYDROCHLORIDE [Concomitant]
     Active Substance: CLONIDINE HYDROCHLORIDE
     Dosage: 0000
     Dates: start: 20160101
  4. LISINOPRIL [Concomitant]
     Active Substance: LISINOPRIL
     Dosage: 0000
     Dates: start: 20160701
  5. TIROSINT [Concomitant]
     Active Substance: LEVOTHYROXINE SODIUM
     Dosage: 0000
     Dates: start: 20160101
  6. FLUTICASONE [Concomitant]
     Active Substance: FLUTICASONE
     Dosage: 0000
     Dates: start: 20160101
  7. MAGNESIUM OXIDE [Concomitant]
     Active Substance: MAGNESIUM OXIDE
     Dosage: 0000
     Dates: start: 20220207
  8. MELOXICAM [Concomitant]
     Active Substance: MELOXICAM
     Dosage: 0000
     Dates: start: 20220201
  9. METHOCARBAMOL [Concomitant]
     Active Substance: METHOCARBAMOL
     Dosage: 0000
     Dates: start: 20220201

REACTIONS (2)
  - Hospitalisation [Unknown]
  - Product administration interrupted [Unknown]
